FAERS Safety Report 7673043-2 (Version None)
Quarter: 2011Q3

REPORT INFORMATION
  Report Type: 
  Country: None (occurrence: None)
  Receive Date: 20110809
  Receipt Date: 20110801
  Transmission Date: 20111222
  Serious: Yes (Other)
  Sender: FDA-Public Use
  Company Number: US-RB-026050-11

PATIENT
  Age: 26 Year
  Sex: Female

DRUGS (1)
  1. SUBOXONE [Suspect]
     Indication: DRUG DEPENDENCE
     Dosage: SUBLINGUAL FILM
     Route: 060
     Dates: start: 20110401

REACTIONS (17)
  - INSOMNIA [None]
  - VOMITING [None]
  - FATIGUE [None]
  - GLOSSODYNIA [None]
  - MUSCLE SPASMS [None]
  - PAIN [None]
  - HYPOAESTHESIA ORAL [None]
  - RETCHING [None]
  - OFF LABEL USE [None]
  - NIGHT SWEATS [None]
  - ASTHENIA [None]
  - OVARIAN CYST RUPTURED [None]
  - ABDOMINAL PAIN [None]
  - SUDDEN ONSET OF SLEEP [None]
  - SOMNOLENCE [None]
  - DRUG WITHDRAWAL SYNDROME [None]
  - HEADACHE [None]
